FAERS Safety Report 7155806-5 (Version None)
Quarter: 2010Q4

REPORT INFORMATION
  Report Type: 
  Country: None (occurrence: None)
  Receive Date: 20101214
  Receipt Date: 20101130
  Transmission Date: 20110411
  Serious: Yes (Death, Hospitalization)
  Sender: FDA-Public Use
  Company Number: US-JNJFOC-20101202725

PATIENT
  Age: 16 Year
  Sex: Male

DRUGS (12)
  1. INFLIXIMAB, RECOMBINANT [Suspect]
     Indication: CHRONIC GRANULOMATOUS DISEASE
     Dosage: INFECTION OCCURRED AFTER 16TH + 18TH INFUSION
     Route: 042
  2. INFLIXIMAB, RECOMBINANT [Suspect]
     Route: 042
  3. INFLIXIMAB, RECOMBINANT [Suspect]
     Route: 042
  4. INFLIXIMAB, RECOMBINANT [Suspect]
     Dosage: 3RD INFUSION-INFECTION OCURRED
     Route: 042
  5. INFLIXIMAB, RECOMBINANT [Suspect]
     Dosage: AFTER 5TH INFUSION, INFECTION OCCURRED AND INFLIXIMAB WAS STOPPED
     Route: 042
  6. MERCAPTOPURINE [Concomitant]
     Indication: CHRONIC GRANULOMATOUS DISEASE
  7. PREDNISONE [Concomitant]
     Indication: CHRONIC GRANULOMATOUS DISEASE
  8. MESALAMINE [Concomitant]
     Indication: CHRONIC GRANULOMATOUS DISEASE
  9. TRIMETHOPRIM + SULFAMETHOXAZOLE [Concomitant]
     Indication: ANTIBIOTIC PROPHYLAXIS
  10. METRONIDAZOLE [Concomitant]
     Indication: ANTIBIOTIC PROPHYLAXIS
  11. CIPROFLOXACIN [Concomitant]
     Indication: ANTIBIOTIC PROPHYLAXIS
  12. POSACONAZOLE [Concomitant]
     Indication: ANTIBIOTIC PROPHYLAXIS

REACTIONS (15)
  - ACINETOBACTER INFECTION [None]
  - BACTERIAL SEPSIS [None]
  - BRONCHOPULMONARY ASPERGILLOSIS [None]
  - CYTOMEGALOVIRUS COLITIS [None]
  - CYTOMEGALOVIRUS VIRAEMIA [None]
  - ECTHYMA [None]
  - MULTI-ORGAN FAILURE [None]
  - PANCYTOPENIA [None]
  - PELVIC ABSCESS [None]
  - PNEUMATOSIS INTESTINALIS [None]
  - PNEUMONIA FUNGAL [None]
  - PSEUDOMONAS INFECTION [None]
  - PYODERMA GANGRENOSUM [None]
  - STENOTROPHOMONAS TEST POSITIVE [None]
  - TORULOPSIS INFECTION [None]
